FAERS Safety Report 17904547 (Version 1)
Quarter: 2020Q2

REPORT INFORMATION
  Report Type: Spontaneous
  Country: NL (occurrence: NL)
  Receive Date: 20200617
  Receipt Date: 20200617
  Transmission Date: 20200714
  Serious: Yes (Other)
  Sender: FDA-Public Use
  Company Number: NL-ACCORD-185581

PATIENT
  Age: 79 Year
  Sex: Male
  Weight: 100 kg

DRUGS (6)
  1. COZAAR [Concomitant]
     Active Substance: LOSARTAN POTASSIUM
     Dosage: FILM-COATED TABLET, 50 MG (MILLIGRAMS)
  2. BOOTS PHARMACEUTICALS (FOLIC ACID) [Concomitant]
     Dosage: 5 MG
  3. ACETYLSALICYLIC ACID [Concomitant]
     Active Substance: ASPIRIN
     Dosage: TABLET, 100 MG (MILLIGRAM)
  4. FUROSEMIDE. [Concomitant]
     Active Substance: FUROSEMIDE
     Dosage: TABLET, 20 MG (MILLIGRAM)
  5. ESOMEPRAZOLE/ESOMEPRAZOLE MAGNESIUM/ESOMEPRAZOLE SODIUM [Suspect]
     Active Substance: ESOMEPRAZOLE
     Indication: PROPHYLAXIS AGAINST GASTROINTESTINAL ULCER
     Dosage: 1D 1T
     Dates: start: 2017
  6. LEVOTHYROXINE. [Concomitant]
     Active Substance: LEVOTHYROXINE
     Dosage: TABLET, 100 UG (MICROGRAM)

REACTIONS (1)
  - Campylobacter gastroenteritis [Not Recovered/Not Resolved]

NARRATIVE: CASE EVENT DATE: 20200519
